FAERS Safety Report 6339987-9 (Version None)
Quarter: 2009Q3

REPORT INFORMATION
  Report Type: 
  Country: None (occurrence: None)
  Receive Date: 20090903
  Receipt Date: 20090827
  Transmission Date: 20100115
  Serious: Yes (Hospitalization)
  Sender: FDA-Public Use
  Company Number: DE-ABBOTT-09P-062-0594100-00

PATIENT
  Sex: Male

DRUGS (7)
  1. HUMIRA [Suspect]
     Indication: PSORIASIS
  2. TORSEMIDE [Concomitant]
     Indication: DRUG USE FOR UNKNOWN INDICATION
  3. PANTOPRAZOL [Concomitant]
     Indication: DRUG USE FOR UNKNOWN INDICATION
  4. PREDNISOLONE [Concomitant]
     Indication: DRUG USE FOR UNKNOWN INDICATION
  5. GABAPENTIN [Concomitant]
     Indication: DRUG USE FOR UNKNOWN INDICATION
  6. PROTAPHANE [Concomitant]
     Indication: TYPE 1 DIABETES MELLITUS
     Route: 058
  7. NORMAL INSULIN [Concomitant]
     Indication: TYPE 1 DIABETES MELLITUS
     Dosage: 18-10-10 IE
     Route: 058

REACTIONS (4)
  - AMNESIA [None]
  - FATIGUE [None]
  - GRAND MAL CONVULSION [None]
  - HYPOKALAEMIA [None]
